FAERS Safety Report 8242203-4 (Version None)
Quarter: 2012Q1

REPORT INFORMATION
  Report Type: 
  Country: None (occurrence: None)
  Receive Date: 20120329
  Receipt Date: 20120326
  Transmission Date: 20120608
  Serious: Yes (Other)
  Sender: FDA-Public Use
  Company Number: US-TEVA-330091USA

PATIENT
  Sex: Male

DRUGS (1)
  1. TRAZODONE HCL [Suspect]
     Indication: DEPRESSION
     Route: 048
     Dates: start: 20120319, end: 20120325

REACTIONS (5)
  - HAEMOPTYSIS [None]
  - CHOKING [None]
  - DIZZINESS [None]
  - FOREIGN BODY [None]
  - DYSPHAGIA [None]
